FAERS Safety Report 10289995 (Version 1)
Quarter: 2014Q3

REPORT INFORMATION
  Report Type: Spontaneous
  Country: US (occurrence: None)
  Receive Date: 20140707
  Receipt Date: 20140707
  Transmission Date: 20150326
  Serious: Yes (Hospitalization)
  Sender: FDA-Public Use
  Company Number: None

PATIENT
  Age: 52 Year
  Sex: Male
  Weight: 76.4 kg

DRUGS (1)
  1. BEVACIZUMAB [Suspect]
     Active Substance: BEVACIZUMAB
     Dates: end: 20140516

REACTIONS (4)
  - Diverticular perforation [None]
  - Peritonitis [None]
  - Wound dehiscence [None]
  - Diverticulitis [None]

NARRATIVE: CASE EVENT DATE: 20140524
